FAERS Safety Report 17914316 (Version 7)
Quarter: 2020Q4

REPORT INFORMATION
  Report Type: Report from Study
  Country: PL (occurrence: PL)
  Receive Date: 20200618
  Receipt Date: 20201223
  Transmission Date: 20210113
  Serious: Yes (Hospitalization, Other)
  Sender: FDA-Public Use
  Company Number: PL-EXELIXIS-XL18420030582

PATIENT
  Age: 69 Year
  Sex: Male
  Weight: 52 kg

DRUGS (28)
  1. JANUVIA [Concomitant]
     Active Substance: SITAGLIPTIN PHOSPHATE
  2. EUTHYROX [Concomitant]
     Active Substance: LEVOTHYROXINE SODIUM
  3. XL184 [Suspect]
     Active Substance: CABOZANTINIB
     Dosage: 40 MG, QD
     Route: 048
     Dates: start: 20200629, end: 20200720
  4. CAVINTON [Concomitant]
     Active Substance: VINPOCETINE
  5. PARACETAMOL [Concomitant]
     Active Substance: ACETAMINOPHEN
  6. TRAMADOL. [Concomitant]
     Active Substance: TRAMADOL
  7. SOLCOSERYL [Concomitant]
     Active Substance: SOLCOSERYL
  8. CONCOR COR [Concomitant]
     Active Substance: BISOPROLOL FUMARATE
  9. KETOPROFEN. [Concomitant]
     Active Substance: KETOPROFEN
  10. ASMAG [Concomitant]
  11. ENCORTON [Concomitant]
     Active Substance: PREDNISONE
  12. POLPRAZOL [Concomitant]
     Active Substance: OMEPRAZOLE
  13. NYSTATIN. [Concomitant]
     Active Substance: NYSTATIN
  14. ESTAZOLAM. [Concomitant]
     Active Substance: ESTAZOLAM
  15. METFORMAX [Concomitant]
     Active Substance: METFORMIN HYDROCHLORIDE
  16. MAGNE B6 [Concomitant]
     Active Substance: MAGNESIUM\PYRIDOXINE
  17. CEFTRIAXONE. [Concomitant]
     Active Substance: CEFTRIAXONE
  18. ACEROLA [Concomitant]
     Active Substance: ACEROLA
  19. ACARD [Concomitant]
     Active Substance: ASPIRIN
  20. CIPROFLOXACIN. [Concomitant]
     Active Substance: CIPROFLOXACIN
  21. ATEZOLIZUMAB. [Suspect]
     Active Substance: ATEZOLIZUMAB
     Indication: HEPATOCELLULAR CARCINOMA
     Dosage: 1200 MG, Q3WEEKS
     Route: 042
     Dates: start: 20191025, end: 20200609
  22. TAROMENTIN [Concomitant]
  23. XL184 [Suspect]
     Active Substance: CABOZANTINIB
     Indication: HEPATOCELLULAR CARCINOMA
     Dosage: 40 MG, QD
     Route: 048
     Dates: start: 20191025
  24. RYTMONORM [Concomitant]
     Active Substance: PROPAFENONE
  25. TRAMAL [Concomitant]
     Active Substance: TRAMADOL
  26. BISEPTOL [Concomitant]
     Active Substance: SULFAMETHOXAZOLE\TRIMETHOPRIM
  27. POSTERISAN H [Concomitant]
  28. PANTOPRAZOL [Concomitant]
     Active Substance: PANTOPRAZOLE SODIUM

REACTIONS (2)
  - Pneumonitis [Recovered/Resolved]
  - Pneumonitis [Recovered/Resolved]

NARRATIVE: CASE EVENT DATE: 20200220
